FAERS Safety Report 26060949 (Version 1)
Quarter: 2025Q4

REPORT INFORMATION
  Report Type: Spontaneous
  Country: US (occurrence: US)
  Receive Date: 20251118
  Receipt Date: 20251118
  Transmission Date: 20260117
  Serious: No
  Sender: PFIZER
  Company Number: US-PFIZER INC-202500223063

PATIENT
  Sex: Female

DRUGS (3)
  1. SPIRONOLACTONE [Suspect]
     Active Substance: SPIRONOLACTONE
     Dosage: 50 MG, 1X/DAY (ONE TABLET EVERY MORNING)
  2. ADDERALL [Concomitant]
     Active Substance: AMPHETAMINE ASPARTATE\AMPHETAMINE SULFATE\DEXTROAMPHETAMINE SACCHARATE\DEXTROAMPHETAMINE SULFATE
     Dosage: 20 MG, 1X/DAY (ONE TABLET EVERY MORNING)
  3. NORETHINDRONE [Concomitant]
     Active Substance: NORETHINDRONE
     Dosage: 0.35 MG, 1X/DAY (ONE TABLET EVERY EVENING)

REACTIONS (3)
  - Intermenstrual bleeding [Recovered/Resolved]
  - Nausea [Not Recovered/Not Resolved]
  - Amenorrhoea [Unknown]

NARRATIVE: CASE EVENT DATE: 20250901
